FAERS Safety Report 16967735 (Version 3)
Quarter: 2019Q4

REPORT INFORMATION
  Report Type: Report from Study
  Country: DE (occurrence: DE)
  Receive Date: 20191028
  Receipt Date: 20191129
  Transmission Date: 20200122
  Serious: Yes (Other)
  Sender: FDA-Public Use
  Company Number: NVSC2019DE017199

PATIENT
  Sex: Female

DRUGS (16)
  1. MAXALT [Concomitant]
     Active Substance: RIZATRIPTAN BENZOATE
     Indication: MIGRAINE
     Dosage: 10 MG (TOTAL DOSE 30MG)
     Route: 065
     Dates: start: 20170319, end: 20170320
  2. TRAUMEEL [Concomitant]
     Indication: JOINT DISLOCATION
     Dosage: UNK
     Route: 014
     Dates: start: 20170324, end: 20170324
  3. ASPISOL [Concomitant]
     Active Substance: ASPIRIN DL-LYSINE
     Indication: MIGRAINE
     Dosage: 1000 MG
     Route: 065
     Dates: start: 20170321, end: 20170321
  4. IBUPROFEN. [Concomitant]
     Active Substance: IBUPROFEN
     Indication: NASOPHARYNGITIS
     Dosage: 400 MG
     Route: 065
     Dates: start: 20170715, end: 20170718
  5. IBUPROFEN. [Concomitant]
     Active Substance: IBUPROFEN
     Indication: PHARYNGITIS BACTERIAL
     Dosage: UNK
     Route: 065
     Dates: start: 20191001, end: 20191011
  6. MEDITONSIN [Concomitant]
     Active Substance: HOMEOPATHICS
     Indication: NASOPHARYNGITIS
     Dosage: UNK
     Route: 065
     Dates: start: 20170715, end: 20170718
  7. ASPIRIN. [Concomitant]
     Active Substance: ASPIRIN
     Indication: NASOPHARYNGITIS
     Dosage: UNK
     Route: 065
     Dates: start: 20170715, end: 20170716
  8. TRAUMEEL [Concomitant]
     Indication: BURSITIS
  9. FOSFOMYCINE [Concomitant]
     Active Substance: FOSFOMYCIN
     Indication: CYSTITIS NONINFECTIVE
     Dosage: 3 G, QD
     Route: 065
     Dates: start: 20170321, end: 20170321
  10. GILENYA [Suspect]
     Active Substance: FINGOLIMOD HYDROCHLORIDE
     Indication: MULTIPLE SCLEROSIS
     Dosage: 0.5 MG, QD
     Route: 048
     Dates: start: 20170301
  11. MCP [Concomitant]
     Active Substance: METOCLOPRAMIDE HYDROCHLORIDE
     Indication: MIGRAINE
     Dosage: 10 MG
     Route: 065
     Dates: start: 20170319, end: 20170319
  12. GELOMYRTOL [Concomitant]
     Indication: NASOPHARYNGITIS
     Dosage: UNK
     Route: 065
     Dates: start: 20170715, end: 20170722
  13. SUMATRIPTAN. [Concomitant]
     Active Substance: SUMATRIPTAN
     Indication: MIGRAINE
     Dosage: 100 MG
     Route: 065
     Dates: start: 20170322, end: 20170322
  14. ASPIRIN. [Concomitant]
     Active Substance: ASPIRIN
     Indication: PHARYNGITIS BACTERIAL
     Dosage: 600 MG, TID
     Route: 065
     Dates: start: 20191007, end: 20191011
  15. NOVALGIN [Concomitant]
     Indication: MIGRAINE
     Dosage: 1000 MG
     Route: 065
     Dates: start: 20170319, end: 20170319
  16. FLUPIRTINE MALEATE [Concomitant]
     Active Substance: FLUPIRTINE MALEATE
     Indication: JOINT DISLOCATION
     Dosage: 800 MG
     Route: 065
     Dates: start: 20170206, end: 20170318

REACTIONS (1)
  - Pharyngitis [Recovered/Resolved]

NARRATIVE: CASE EVENT DATE: 20191004
